FAERS Safety Report 8793466 (Version 3)
Quarter: 2015Q2

REPORT INFORMATION
  Report Type: Report from Study
  Country: US (occurrence: US)
  Receive Date: 20120918
  Receipt Date: 20150629
  Transmission Date: 20150821
  Serious: Yes (Death)
  Sender: FDA-Public Use
  Company Number: US-ROCHE-1127486

PATIENT
  Age: 54 Year
  Sex: Male
  Weight: 60 kg

DRUGS (16)
  1. AVASTIN [Suspect]
     Active Substance: BEVACIZUMAB
     Indication: OESOPHAGEAL CARCINOMA
     Dosage: RECEIVED ON 12/MAR/2007
     Route: 042
     Dates: start: 20070226
  2. DECADRON [Concomitant]
     Active Substance: DEXAMETHASONE
     Dosage: RECEIVED ON 29/MAR/2006
     Route: 065
  3. LASIX [Concomitant]
     Active Substance: FUROSEMIDE
     Dosage: RECEIVED ON 19/APR/2006, 10/MAY/2006, 31/MAY/2006, 30/JUN/2006
     Route: 065
  4. TAXOTERE [Concomitant]
     Active Substance: DOCETAXEL
     Dosage: RECEIVED ON 08/MAR/2006, 29/MAR/2006, 19/APR/2006, 10/MAY/2006, 31/MAY/2006, 30/JUN/2006
     Route: 065
  5. CISPLATIN. [Concomitant]
     Active Substance: CISPLATIN
     Dosage: RECEIVED ON 08/MAR/2006, 29/MAR/2006, 19/APR/2006, 10/MAY/2006, 31/MAY/2006, 30/JUN/2006
     Route: 065
  6. HEPARIN [Concomitant]
     Active Substance: HEPARIN SODIUM
     Dosage: 500 UVI, RECEIVED ON 08/MAR/2006, 22/MAR/2006, 29/MAR/2006, 05/MAY/2006, 19/APR/2006, 03/MAY/2006, 1
     Route: 065
  7. AVASTIN [Suspect]
     Active Substance: BEVACIZUMAB
     Indication: METASTASIS
     Dosage: RECEIVED ON  22/MAR/2006, 29/MAR/2006, 05/APR/2006, 19/APR/2006, 03/MAY/2006,  19/MAY/2006, 31/MAY/2
     Route: 042
     Dates: start: 20060308
  8. COUMADIN [Concomitant]
     Active Substance: WARFARIN SODIUM
  9. POTASSIUM CHLORIDE. [Concomitant]
     Active Substance: POTASSIUM CHLORIDE
     Dosage: RECEIVED ON 08/MAR/2006, 29/MAR/2006, 19/APR/2006, 10/MAY/2006
     Route: 065
  10. MANNITOL. [Concomitant]
     Active Substance: MANNITOL
     Dosage: RECEIVED ON 08/MAR/2006, 29/MAR/2006, 19/APR/2006, 10/MAY/2006, 31/MAY/2006, 30/JUN/2006
     Route: 065
  11. LOVENOX [Concomitant]
     Active Substance: ENOXAPARIN SODIUM
  12. DECADRON [Concomitant]
     Active Substance: DEXAMETHASONE
     Dosage: RECEIVED ON 08/MAR/2006, 19/APR/2006, 10/MAY/2006, 31/MAY/2006, 30/JUN/2006
     Route: 065
  13. BENADRYL [Concomitant]
     Active Substance: DIPHENHYDRAMINE HYDROCHLORIDE
     Dosage: RECEIVED ON 08/MAR/2006, 22/MAR/2006, 29/MAR/2006, 19/APR/2006, 03/MAY/2006, 10/MAY/2006, 19/MAY/200
     Route: 065
  14. TYLENOL [Concomitant]
     Active Substance: ACETAMINOPHEN
     Dosage: RECEIVED ON 08/MAR/2006, 22/MAR/2006, 19/APR/2006, 03/MAY/2006, 10/MAY/2006, 19/MAY/2006, 31/MAY/200
     Route: 065
  15. ZOFRAN [Concomitant]
     Active Substance: ONDANSETRON HYDROCHLORIDE
     Dosage: RECEIVED ON 08/MAR/2006, 29/MAR/2006, 19/APR/2006, 10/MAY/2006, 31/MAY/2006, 30/JUN/2006
     Route: 065
  16. AVASTIN [Suspect]
     Active Substance: BEVACIZUMAB
     Route: 042
     Dates: end: 20070409

REACTIONS (3)
  - Deep vein thrombosis [Unknown]
  - Death [Fatal]
  - Off label use [Unknown]

NARRATIVE: CASE EVENT DATE: 20070423
